FAERS Safety Report 8890720 (Version 1)
Quarter: 2012Q4

REPORT INFORMATION
  Report Type: 
  Country: US (occurrence: US)
  Receive Date: 20121106
  Receipt Date: 20121106
  Transmission Date: 20130627
  Serious: No
  Sender: FDA-Public Use
  Company Number: US-ASTRAZENECA-2011SE55250

PATIENT
  Age: 39 Year
  Sex: Female
  Weight: 81.6 kg

DRUGS (14)
  1. SEROQUEL [Suspect]
     Indication: SLEEP DISORDER
     Route: 048
  2. SEROQUEL [Suspect]
     Indication: BIPOLAR DISORDER
     Route: 048
  3. SEROQUEL [Suspect]
     Indication: INSOMNIA
     Route: 048
  4. SEROQUEL [Suspect]
     Indication: SLEEP DISORDER
     Dosage: 300 mg two tablets once a day
     Route: 048
  5. SEROQUEL [Suspect]
     Indication: BIPOLAR DISORDER
     Dosage: 300 mg two tablets once a day
     Route: 048
  6. SEROQUEL [Suspect]
     Indication: INSOMNIA
     Dosage: 300 mg two tablets once a day
     Route: 048
  7. SEROQUEL [Suspect]
     Indication: SLEEP DISORDER
     Route: 048
  8. SEROQUEL [Suspect]
     Indication: BIPOLAR DISORDER
     Route: 048
  9. SEROQUEL [Suspect]
     Indication: INSOMNIA
     Route: 048
  10. SEROQUEL [Suspect]
     Indication: SLEEP DISORDER
     Dosage: 300 mg two tablets once a day
     Route: 048
  11. SEROQUEL [Suspect]
     Indication: BIPOLAR DISORDER
     Dosage: 300 mg two tablets once a day
     Route: 048
  12. SEROQUEL [Suspect]
     Indication: INSOMNIA
     Dosage: 300 mg two tablets once a day
     Route: 048
  13. TRILEPTAL [Concomitant]
     Indication: BIPOLAR DISORDER
  14. DEPAKOTE [Concomitant]

REACTIONS (6)
  - Insomnia [Unknown]
  - Depression [Unknown]
  - Diarrhoea [Unknown]
  - Withdrawal syndrome [Unknown]
  - Drug prescribing error [Unknown]
  - Drug dose omission [Unknown]
